FAERS Safety Report 4754206-2 (Version None)
Quarter: 2005Q3

REPORT INFORMATION
  Report Type: 
  Country: None (occurrence: None)
  Receive Date: 20050826
  Receipt Date: 20050812
  Transmission Date: 20060218
  Serious: Yes (Disabling, Other)
  Sender: FDA-Public Use
  Company Number: 2005116610

PATIENT
  Age: 52 Year
  Sex: Male
  Weight: 106.5953 kg

DRUGS (5)
  1. XANAX [Suspect]
     Indication: ANXIETY
     Dosage: 1 MG (1 MG, 1 IN 1 D)
  2. ANTIHYPERTENSIVES (ANTIHYPERTENSIVES) [Suspect]
     Indication: HYPERTENSION
     Dates: end: 20050601
  3. LORTAB [Concomitant]
  4. BENADRYL [Concomitant]
  5. TYLENOL [Concomitant]

REACTIONS (1)
  - HYPERTROPHY BREAST [None]
